FAERS Safety Report 9689047 (Version 1)
Quarter: 2013Q4

REPORT INFORMATION
  Report Type: Spontaneous
  Country: US (occurrence: US)
  Receive Date: 20131114
  Receipt Date: 20131114
  Transmission Date: 20140711
  Serious: Yes (Hospitalization)
  Sender: FDA-Public Use
  Company Number: US-PERRIGO-13US011450

PATIENT
  Age: 23 Year
  Sex: Female
  Weight: 56.69 kg

DRUGS (2)
  1. IBUPROFEN 200 MG 604 [Suspect]
     Indication: HEADACHE
     Dosage: 400 MG, SINGLE
     Route: 048
     Dates: start: 20131101, end: 20131101
  2. IBUPROFEN 200 MG 604 [Suspect]
     Indication: PAIN
     Dosage: PRN
     Route: 048

REACTIONS (4)
  - Meningitis [Not Recovered/Not Resolved]
  - Infection [Not Recovered/Not Resolved]
  - Feeling cold [Unknown]
  - Chills [Unknown]
